FAERS Safety Report 6719594-6 (Version None)
Quarter: 2010Q2

REPORT INFORMATION
  Report Type: 
  Country: None (occurrence: None)
  Receive Date: 20100510
  Receipt Date: 20100510
  Transmission Date: 20101027
  Serious: Yes (Other)
  Sender: FDA-Public Use
  Company Number: None

PATIENT
  Age: 65 Year
  Sex: Female
  Weight: 58.9676 kg

DRUGS (2)
  1. ACTONEL [Suspect]
     Indication: OSTEOPOROSIS
     Dosage: 1 MONTH SUPPLY
     Dates: start: 20090228, end: 20090327
  2. ACTONEL [Suspect]
     Indication: OSTEOPOROSIS
     Dosage: 1 MONTH SUPPLY
     Dates: start: 20090328, end: 20090427

REACTIONS (7)
  - ABDOMINAL PAIN UPPER [None]
  - ARTHRALGIA [None]
  - HEADACHE [None]
  - JOINT STIFFNESS [None]
  - PAIN [None]
  - PAIN IN EXTREMITY [None]
  - PYREXIA [None]
